FAERS Safety Report 23193174 (Version 2)
Quarter: 2024Q1

REPORT INFORMATION
  Report Type: Report from Study
  Country: US (occurrence: US)
  Receive Date: 20231116
  Receipt Date: 20240129
  Transmission Date: 20240410
  Serious: Yes (Hospitalization, Other)
  Sender: FDA-Public Use
  Company Number: US-ABBVIE-5420138

PATIENT
  Age: 85 Year
  Sex: Female
  Weight: 55.791 kg

DRUGS (5)
  1. HUMIRA [Suspect]
     Active Substance: ADALIMUMAB
     Indication: Crohn^s disease
     Dosage: FORM STRENGTH: 40 MILLIGRAM?CITRATE FREE
     Route: 058
     Dates: start: 20200101
  2. HUMIRA [Suspect]
     Active Substance: ADALIMUMAB
     Dosage: FORM STRENGTH: 40 MILLIGRAM?CITRATE FREE
     Route: 058
     Dates: start: 2023
  3. OMEPRAZOLE [Concomitant]
     Active Substance: OMEPRAZOLE
     Indication: Crohn^s disease
  4. CHOLESTYRAMINE [Concomitant]
     Active Substance: CHOLESTYRAMINE
     Indication: Crohn^s disease
  5. BUDESONIDE [Concomitant]
     Active Substance: BUDESONIDE
     Indication: Blood cholesterol increased
     Dosage: 3MG CAPS #90?EXTENDED RELEASE

REACTIONS (8)
  - Rehabilitation therapy [Not Recovered/Not Resolved]
  - Dysstasia [Recovering/Resolving]
  - COVID-19 [Recovered/Resolved]
  - Fall [Unknown]
  - Gait inability [Recovering/Resolving]
  - COVID-19 [Recovered/Resolved]
  - Crohn^s disease [Recovered/Resolved]
  - Decreased appetite [Recovered/Resolved]

NARRATIVE: CASE EVENT DATE: 20230901
